FAERS Safety Report 8565492-5 (Version None)
Quarter: 2012Q3

REPORT INFORMATION
  Report Type: 
  Country: None (occurrence: None)
  Receive Date: 20120803
  Receipt Date: 19830421
  Transmission Date: 20120928
  Serious: No
  Sender: FDA-Public Use
  Company Number: US-009507513-83050280

PATIENT

DRUGS (2)
  1. SINEMET [Suspect]
     Indication: PARKINSON'S DISEASE
     Dosage: 4 MG, UNK
     Route: 048
     Dates: start: 19820107
  2. LASIX [Concomitant]
     Indication: HYPERTENSION
     Route: 048

REACTIONS (1)
  - ALOPECIA [None]
